FAERS Safety Report 4681815-1 (Version None)
Quarter: 2005Q2

REPORT INFORMATION
  Report Type: 
  Country: None (occurrence: None)
  Receive Date: 20050602
  Receipt Date: 20050520
  Transmission Date: 20051028
  Serious: Yes (Hospitalization)
  Sender: FDA-Public Use
  Company Number: 2005S1000135

PATIENT
  Age: 63 Year
  Sex: Female

DRUGS (5)
  1. ACITRETIN (ACITRETIN) (25 MG) [Suspect]
     Indication: PSORIASIS
     Dosage: 25 MG; QD; PO
     Route: 048
     Dates: start: 20050404, end: 20050414
  2. SANDIMMUNE [Suspect]
     Indication: PSORIASIS
     Dates: start: 20041101, end: 20050418
  3. ACITRETIN (ACITRETIN) (25MG) [Suspect]
     Indication: PSORIASIS
     Dosage: 25 MG; QD; PO
     Route: 048
     Dates: start: 20050514
  4. ORAL ANTIDIABETICS [Concomitant]
  5. INSULIN [Concomitant]

REACTIONS (4)
  - CEREBRAL HAEMORRHAGE [None]
  - CEREBROVASCULAR ACCIDENT [None]
  - HEPATIC ENZYME INCREASED [None]
  - THROMBOCYTOPENIA [None]
